FAERS Safety Report 11023871 (Version 4)
Quarter: 2015Q2

REPORT INFORMATION
  Report Type: Spontaneous
  Country: US (occurrence: US)
  Receive Date: 20150413
  Receipt Date: 20150522
  Transmission Date: 20150821
  Serious: No
  Sender: FDA-Public Use
  Company Number: US-PFIZER INC-2015121956

PATIENT
  Age: 37 Year
  Sex: Male

DRUGS (2)
  1. CISPLATIN. [Suspect]
     Active Substance: CISPLATIN
     Indication: THYMOMA MALIGNANT
     Dosage: UNK (EVERY 2 WEEKS)
     Dates: start: 20140903, end: 20150127
  2. IRINOTECAN HCL [Suspect]
     Active Substance: IRINOTECAN HYDROCHLORIDE
     Indication: THYMOMA MALIGNANT
     Dosage: UNK  (EVERY 2 WEEKS)
     Dates: start: 20140401, end: 20150127

REACTIONS (4)
  - Chest pain [Unknown]
  - Thymoma malignant [Unknown]
  - Disease progression [Unknown]
  - Blood urine present [Unknown]

NARRATIVE: CASE EVENT DATE: 201503
